FAERS Safety Report 14760523 (Version 1)
Quarter: 2018Q2

REPORT INFORMATION
  Report Type: Spontaneous
  Country: US (occurrence: US)
  Receive Date: 20180414
  Receipt Date: 20180414
  Transmission Date: 20180711
  Serious: No
  Sender: FDA-Public Use
  Company Number: US-TEVA-2018-US-867015

PATIENT
  Sex: Female

DRUGS (3)
  1. OXYTROL [Suspect]
     Active Substance: OXYBUTYNIN
     Indication: MICTURITION URGENCY
     Route: 062
     Dates: start: 20180221, end: 20180228
  2. LEXAPRO [Interacting]
     Active Substance: ESCITALOPRAM OXALATE
     Indication: ANXIETY
  3. VITAMIN D [Concomitant]
     Active Substance: CHOLECALCIFEROL

REACTIONS (4)
  - Drug interaction [Unknown]
  - Nervousness [Unknown]
  - Anxiety [Unknown]
  - Fatigue [Unknown]
